APPROVED DRUG PRODUCT: METRO I.V. IN PLASTIC CONTAINER
Active Ingredient: METRONIDAZOLE
Strength: 500MG/100ML
Dosage Form/Route: INJECTABLE;INJECTION
Application: N018900 | Product #001
Applicant: B BRAUN MEDICAL INC
Approved: Sep 29, 1983 | RLD: Yes | RS: No | Type: DISCN